FAERS Safety Report 7893208 (Version 2)
Quarter: 2012Q4

REPORT INFORMATION
  Report Type: Spontaneous
  Country: US (occurrence: None)
  Receive Date: 20110321
  Receipt Date: 20121022
  Transmission Date: 20130627
  Serious: Yes (Hospitalization, Other)
  Sender: FDA-Public Use
  Company Number: 2011MA002171

PATIENT
  Sex: Female
  Weight: 61.24 kg

DRUGS (69)
  1. METOCLOPRAMIDE HYDROCHLORIDE [Suspect]
     Indication: ACID REFLUX
     Dosage: PO
     Route: 048
     Dates: start: 20050504, end: 20100510
  2. ADVAIR [Concomitant]
  3. ALBUTEROL [Concomitant]
  4. ALENDRONATE [Concomitant]
  5. AMOXICILLIN [Concomitant]
  6. ANTARA [Concomitant]
  7. APAP/ CODEINE [Concomitant]
  8. ASPIRINE [Concomitant]
  9. AVANDIA [Concomitant]
  10. AZITHROMYCIN [Concomitant]
  11. BENZONATATE [Concomitant]
  12. CALCIUM [Concomitant]
  13. CARDIZEM [Concomitant]
  14. CARVEDILOL [Concomitant]
  15. CEFPROZIL [Concomitant]
  16. CEFUROXIME [Concomitant]
  17. CEPHALEXIN [Concomitant]
  18. CIPROFLOXACIN [Concomitant]
  19. CITALOPRAM [Concomitant]
  20. CLARITIN [Concomitant]
  21. CLOPIDOGREL [Concomitant]
  22. COLACE [Concomitant]
  23. COMBIVENT [Concomitant]
  24. CYANOCOBALAMIN [Concomitant]
  25. DILTIAZEM CD [Concomitant]
  26. DILTIAZEM [Concomitant]
  27. DOCUSATE [Concomitant]
  28. FENTANYL [Concomitant]
  29. FERROUS SULFATE [Concomitant]
  30. FEXOFENADINE [Concomitant]
  31. FUROSEMIDE [Concomitant]
  32. GABAPENTIN [Concomitant]
  33. GLIMEPIRIDE [Concomitant]
  34. GLYCOPYRROLATE [Concomitant]
  35. HEPARIN [Concomitant]
  36. HYDROCODONE/APAP [Concomitant]
  37. HYDROXYZINE [Concomitant]
  38. IMDUR [Concomitant]
  39. ISOSORBIDE [Concomitant]
  40. JANUVIA [Concomitant]
  41. KETOCONAZOLE [Concomitant]
  42. LEVAQUIN [Concomitant]
  43. LIDOCAINE GEL [Concomitant]
  44. LIPITOR [Concomitant]
  45. LISINOPRIL [Concomitant]
  46. LORATADINE [Concomitant]
  47. METFORMIN [Concomitant]
  48. METHYLPREDNISOLONE [Concomitant]
  49. NEVANAC OPHTHALMIC [Concomitant]
  50. NEXIUM [Concomitant]
  51. NITROQUICK [Concomitant]
  52. OLUX-E TOPICAL [Concomitant]
  53. PHENAZOPYRIDINE [Concomitant]
  54. PREVACID [Concomitant]
  55. PREVIDENT [Concomitant]
  56. PULMICORT [Concomitant]
  57. RESTORIL [Concomitant]
  58. ROXICET [Concomitant]
  59. NIZORAL [Concomitant]
  60. SULINDAC [Concomitant]
  61. TAMIFLU [Concomitant]
  62. TEMAZEPAM [Concomitant]
  63. TETRACYCLINE [Concomitant]
  64. TRAMADOL [Concomitant]
  65. TRAVATAN OPHTHALMIC [Concomitant]
  66. VITAMIN D [Concomitant]
  67. ZEGERID [Concomitant]
  68. ZETIA [Concomitant]
  69. ZOVIRAX CREAM [Concomitant]

REACTIONS (21)
  - Tardive dyskinesia [None]
  - Emotional distress [None]
  - Transient ischaemic attack [None]
  - Productive cough [None]
  - Feeling abnormal [None]
  - Dyspepsia [None]
  - Hyperlipidaemia [None]
  - Chest pain [None]
  - Chest discomfort [None]
  - Loss of consciousness [None]
  - Dizziness [None]
  - Confusional state [None]
  - Syncope [None]
  - Microcytic anaemia [None]
  - Head injury [None]
  - Angina unstable [None]
  - Hyponatraemia [None]
  - Hypertension [None]
  - Asthenia [None]
  - Dyspnoea [None]
  - Iron deficiency anaemia [None]
